FAERS Safety Report 5352383-6 (Version None)
Quarter: 2007Q2

REPORT INFORMATION
  Report Type: 
  Country: None (occurrence: None)
  Receive Date: 20070607
  Receipt Date: 20070525
  Transmission Date: 20071010
  Serious: Yes (Life-Threatening, Hospitalization, Disabling, Other)
  Sender: FDA-Public Use
  Company Number: MEDI-0005149

PATIENT
  Age: 68 Year
  Sex: Male

DRUGS (13)
  1. ETHYOL [Suspect]
     Indication: PROPHYLAXIS
     Dosage: 340 MG, 3 IN 1 WK, INTRAVENOUS (NOT OTHERWISE SPECIFIED)
     Route: 042
     Dates: start: 20060928, end: 20061106
  2. ETHYOL [Suspect]
     Indication: RADIOTHERAPY
     Dosage: 340 MG, 3 IN 1 WK, INTRAVENOUS (NOT OTHERWISE SPECIFIED)
     Route: 042
     Dates: start: 20060928, end: 20061106
  3. CIPROFLOXACIN [Suspect]
     Indication: INFECTION
     Dosage: ORAL
     Route: 048
     Dates: start: 20061106, end: 20061109
  4. AUGMENTIN '125' [Suspect]
     Indication: INFECTION
     Dosage: INTRAVENOUS (NOT OTHERWISE SPECIFIED)
     Route: 042
     Dates: start: 20061106, end: 20061109
  5. FLUCONAZOLE [Suspect]
     Indication: INFECTION
     Dosage: INTRAVENOUS (NOT OTHERWISE SPECIFIED)
     Route: 042
     Dates: start: 20061106, end: 20061109
  6. ACETAMINOPHEN [Suspect]
     Dosage: INTRAVENOUS (NOT OTHERWISE SPECIFIED)
     Route: 042
     Dates: start: 20061106, end: 20061107
  7. PRIMPERAN TAB [Suspect]
     Indication: NAUSEA
     Dosage: INTRAVENOUS (NOT OTHERWISE SPECIFIED)
     Route: 042
     Dates: start: 20061106, end: 20061106
  8. PRIMPERAN TAB [Suspect]
     Indication: VOMITING
     Dosage: INTRAVENOUS (NOT OTHERWISE SPECIFIED)
     Route: 042
     Dates: start: 20061106, end: 20061106
  9. CITALOPRAM HYDROBROMIDE [Concomitant]
  10. LORAZEPAM [Concomitant]
  11. ZALDIAR (PARACETAMOL, TRAMADOL HYDROCHLORIDE) [Concomitant]
  12. ACETAMINOPHEN [Concomitant]
  13. RADIATION THERAPY [Concomitant]

REACTIONS (31)
  - AGRANULOCYTOSIS [None]
  - BRONCHIAL OBSTRUCTION [None]
  - CORNEAL PERFORATION [None]
  - DERMATITIS EXFOLIATIVE [None]
  - DISTURBANCE IN ATTENTION [None]
  - DYSPHAGIA [None]
  - ERYTHEMA [None]
  - FALL [None]
  - HAEMODYNAMIC INSTABILITY [None]
  - HEART RATE INCREASED [None]
  - HISTIOCYTOSIS HAEMATOPHAGIC [None]
  - HYPOTENSION [None]
  - HYPOTHERMIA [None]
  - HYPOXIA [None]
  - ISCHAEMIA [None]
  - LEUKOPENIA [None]
  - MALAISE [None]
  - MUCOSAL INFLAMMATION [None]
  - MULTI-ORGAN FAILURE [None]
  - PLEURAL EFFUSION [None]
  - POOR PERIPHERAL CIRCULATION [None]
  - PYREXIA [None]
  - RADIATION SKIN INJURY [None]
  - RENAL FAILURE [None]
  - RESPIRATORY DISTRESS [None]
  - RESPIRATORY FAILURE [None]
  - SEPSIS [None]
  - SERRATIA INFECTION [None]
  - SOMNOLENCE [None]
  - STAPHYLOCOCCAL INFECTION [None]
  - TOXIC EPIDERMAL NECROLYSIS [None]
